FAERS Safety Report 23755274 (Version 1)
Quarter: 2024Q2

REPORT INFORMATION
  Report Type: Spontaneous
  Country: JP (occurrence: JP)
  Receive Date: 20240418
  Receipt Date: 20240418
  Transmission Date: 20240716
  Serious: Yes (Other)
  Sender: FDA-Public Use
  Company Number: JP-DSJP-DSJ-2024-116211

PATIENT
  Age: 46 Year
  Sex: Female

DRUGS (19)
  1. DENOSUMAB [Suspect]
     Active Substance: DENOSUMAB
     Indication: Metastases to bone
     Dosage: UNK
     Route: 065
  2. PACLITAXEL [Suspect]
     Active Substance: PACLITAXEL
     Indication: Invasive ductal breast carcinoma
     Dosage: UNK
     Route: 065
  3. GEMCITABINE [Suspect]
     Active Substance: GEMCITABINE
     Indication: Invasive ductal breast carcinoma
     Dosage: UNK, ONE COURSE ONLY
     Route: 065
  4. GEMCITABINE [Suspect]
     Active Substance: GEMCITABINE
     Dosage: UNK
     Route: 065
  5. VINORELBINE [Suspect]
     Active Substance: VINORELBINE TARTRATE
     Indication: Invasive ductal breast carcinoma
     Dosage: UNK, ONE COURSE ONLY
     Route: 065
  6. CAPECITABINE [Suspect]
     Active Substance: CAPECITABINE
     Indication: Invasive ductal breast carcinoma
     Dosage: UNK, 1 COURSE ONLY
     Route: 065
  7. BEVACIZUMAB [Concomitant]
     Active Substance: BEVACIZUMAB
     Dosage: UNK
     Route: 065
  8. LETROZOLE [Concomitant]
     Active Substance: LETROZOLE
     Indication: Invasive ductal breast carcinoma
     Dosage: UNK UNK, Q3MO
     Route: 065
  9. NIVOLUMAB [Concomitant]
     Active Substance: NIVOLUMAB
     Indication: Invasive ductal breast carcinoma
     Dosage: UNK, THE UMINID 000026046 CLINICAL TRIAL
     Route: 065
  10. FULVESTRANT [Concomitant]
     Active Substance: FULVESTRANT
     Indication: Invasive ductal breast carcinoma
     Dosage: UNK, THE UMINID 000026046 CLINICAL TRIAL
     Route: 065
  11. ERIBULIN [Concomitant]
     Active Substance: ERIBULIN
     Indication: Invasive ductal breast carcinoma
     Dosage: UNK UNK, Q9MO
     Route: 065
  12. TOREMIFENE [Concomitant]
     Active Substance: TOREMIFENE
     Indication: Invasive ductal breast carcinoma
     Dosage: UNK UNK, Q3MO
     Route: 065
  13. ABEMACICLIB [Concomitant]
     Active Substance: ABEMACICLIB
     Indication: Invasive ductal breast carcinoma
     Dosage: UNK UNK, Q3MO
     Route: 065
  14. FLUOROURACIL [Concomitant]
     Active Substance: FLUOROURACIL
     Indication: Invasive ductal breast carcinoma
     Dosage: 500 MG/BODY ON DAYS 1, 8, AND 15
     Route: 065
  15. FLUOROURACIL [Concomitant]
     Active Substance: FLUOROURACIL
     Dosage: 500 MG/BODY ON DAYS 1, 8, AND 15 (FEM REGIMEN, EVERY 28 DAYS)
     Route: 065
  16. EPIRUBICIN [Concomitant]
     Active Substance: EPIRUBICIN
     Indication: Invasive ductal breast carcinoma
     Dosage: 40 MG/BODY ON DAY 1
     Route: 065
  17. EPIRUBICIN [Concomitant]
     Active Substance: EPIRUBICIN
     Dosage: 40 MG/BODY ON DAY 1 (FEM REGIMEN, EVERY 28 DAYS)
     Route: 065
  18. MITOMYCIN C [Concomitant]
     Active Substance: MITOMYCIN
     Indication: Invasive ductal breast carcinoma
     Dosage: 4 MG/BODY ON DAY 1 AND 15
     Route: 065
  19. MITOMYCIN C [Concomitant]
     Active Substance: MITOMYCIN
     Dosage: 4 MG/BODY ON DAY 1 AND 15 (FEM REGIMEN, EVERY 28 DAYS)
     Route: 065

REACTIONS (3)
  - Brain oedema [Unknown]
  - Metastases to central nervous system [Unknown]
  - Fatigue [Unknown]
